FAERS Safety Report 14178076 (Version 1)
Quarter: 2017Q4

REPORT INFORMATION
  Report Type: Spontaneous
  Country: US (occurrence: US)
  Receive Date: 20171110
  Receipt Date: 20171110
  Transmission Date: 20180321
  Serious: No
  Sender: FDA-Public Use
  Company Number: US-SHIRE-US201727037

PATIENT

DRUGS (1)
  1. XIIDRA [Suspect]
     Active Substance: LIFITEGRAST
     Indication: PRODUCT USED FOR UNKNOWN INDICATION
     Dosage: UNK, 1X/DAY:QD
     Route: 047

REACTIONS (10)
  - Blood cholesterol increased [Unknown]
  - Instillation site swelling [Unknown]
  - Vision blurred [Unknown]
  - Instillation site pain [Unknown]
  - Instillation site erythema [Unknown]
  - Instillation site burn [Unknown]
  - Instillation site reaction [Unknown]
  - Drug ineffective [Unknown]
  - Product quality issue [Unknown]
  - Instillation site irritation [Unknown]
